FAERS Safety Report 11976583 (Version 1)
Quarter: 2016Q1

REPORT INFORMATION
  Report Type: Report from Study
  Country: CA (occurrence: CA)
  Receive Date: 20160129
  Receipt Date: 20160129
  Transmission Date: 20160526
  Serious: Yes (Death)
  Sender: FDA-Public Use
  Company Number: PHHY2013CA096455

PATIENT
  Age: 59 Year
  Sex: Male

DRUGS (2)
  1. AFINITOR [Suspect]
     Active Substance: EVEROLIMUS
     Dosage: 10 MG, QMO (ONCE A MONTH)
     Route: 048
  2. AFINITOR [Suspect]
     Active Substance: EVEROLIMUS
     Indication: NEUROENDOCRINE TUMOUR
     Dosage: 10 MG, QD (DAILY)
     Route: 048
     Dates: start: 20130816

REACTIONS (2)
  - Oropharyngeal pain [Unknown]
  - Death [Fatal]

NARRATIVE: CASE EVENT DATE: 20131025
